FAERS Safety Report 19263549 (Version 1)
Quarter: 2021Q2

REPORT INFORMATION
  Report Type: Spontaneous
  Country: US (occurrence: US)
  Receive Date: 20210517
  Receipt Date: 20210517
  Transmission Date: 20210717
  Serious: Yes (Other)
  Sender: FDA-Public Use
  Company Number: US-SPECGX-T202100299

PATIENT
  Sex: Male

DRUGS (10)
  1. FENTANYL CITRATE. [Suspect]
     Active Substance: FENTANYL CITRATE
     Indication: RHEUMATIC DISORDER
     Dosage: UNK
     Route: 065
     Dates: start: 1996
  2. MORPHINE [Suspect]
     Active Substance: MORPHINE
     Indication: RHEUMATIC DISORDER
     Dosage: UNK
     Route: 065
     Dates: start: 1996
  3. MORPHINE [Suspect]
     Active Substance: MORPHINE
     Indication: PAIN
  4. OXYCODONE [Suspect]
     Active Substance: OXYCODONE
     Indication: PAIN
  5. METHADONE [Suspect]
     Active Substance: METHADONE HYDROCHLORIDE
     Indication: PAIN
  6. FENTANYL CITRATE. [Suspect]
     Active Substance: FENTANYL CITRATE
     Indication: PAIN
  7. OXYCODONE [Suspect]
     Active Substance: OXYCODONE
     Indication: RHEUMATIC DISORDER
     Dosage: UNK
     Route: 065
     Dates: start: 1996
  8. METHADONE [Suspect]
     Active Substance: METHADONE HYDROCHLORIDE
     Indication: RHEUMATIC DISORDER
     Dosage: UNK
     Route: 065
     Dates: start: 1996
  9. HYDROCODONE [Suspect]
     Active Substance: HYDROCODONE
     Indication: PAIN
  10. HYDROCODONE [Suspect]
     Active Substance: HYDROCODONE
     Indication: RHEUMATIC DISORDER
     Dosage: UNK
     Route: 065
     Dates: start: 1996

REACTIONS (8)
  - Quality of life decreased [Unknown]
  - Overdose [Unknown]
  - Loss of libido [Unknown]
  - Withdrawal syndrome [Unknown]
  - Loss of personal independence in daily activities [Unknown]
  - Loss of employment [Unknown]
  - Insomnia [Unknown]
  - Drug dependence [Unknown]
